FAERS Safety Report 15272865 (Version 1)
Quarter: 2018Q3

REPORT INFORMATION
  Report Type: Spontaneous
  Country: US (occurrence: US)
  Receive Date: 20180813
  Receipt Date: 20180813
  Transmission Date: 20181010
  Serious: No
  Sender: FDA-Public Use
  Company Number: US-PURDUE-USA-2018-0142668

PATIENT
  Sex: Female

DRUGS (1)
  1. BUTRANS [Suspect]
     Active Substance: BUPRENORPHINE
     Indication: PRODUCT USED FOR UNKNOWN INDICATION
     Dosage: 7.5 MCG/HR, WEEKLY
     Route: 062

REACTIONS (7)
  - Thermal burn [Unknown]
  - Application site pain [Unknown]
  - Blister [Unknown]
  - Application site pruritus [Unknown]
  - Device leakage [Unknown]
  - Product adhesion issue [Unknown]
  - Erythema [Unknown]
